FAERS Safety Report 11479637 (Version 1)
Quarter: 2015Q3

REPORT INFORMATION
  Report Type: Spontaneous
  Country: US (occurrence: US)
  Receive Date: 20150909
  Receipt Date: 20150909
  Transmission Date: 20151125
  Serious: No
  Sender: FDA-Public Use
  Company Number: US-JAZZ-2014-US-015206

PATIENT
  Age: 39 Year
  Sex: Female
  Weight: 111.11 kg

DRUGS (11)
  1. PHENERGAN [Concomitant]
     Active Substance: PROMETHAZINE HYDROCHLORIDE
     Indication: MIGRAINE
     Dosage: UNK
  2. RITALIN [Concomitant]
     Active Substance: METHYLPHENIDATE HYDROCHLORIDE
     Indication: HYPERSOMNIA
     Dosage: UNK
  3. SIMVASTATIN. [Concomitant]
     Active Substance: SIMVASTATIN
     Indication: CEREBROVASCULAR ACCIDENT
     Dosage: UNK
  4. XYREM [Suspect]
     Active Substance: SODIUM OXYBATE
     Indication: SLEEP DISORDER
     Dosage: 0.75 G, BID
     Route: 048
     Dates: start: 20141025, end: 2014
  5. XYREM [Suspect]
     Active Substance: SODIUM OXYBATE
     Dosage: 1.5 G, BID
     Route: 048
     Dates: start: 2014, end: 2014
  6. BOTOX [Concomitant]
     Active Substance: ONABOTULINUMTOXINA
     Indication: MIGRAINE
     Dosage: UNK
  7. VITAMIN B2 [Concomitant]
     Active Substance: RIBOFLAVIN
     Indication: MIGRAINE
     Dosage: UNK
  8. ZANAFLEX [Concomitant]
     Active Substance: TIZANIDINE HYDROCHLORIDE
     Indication: MIGRAINE
     Dosage: UNK
  9. XYREM [Suspect]
     Active Substance: SODIUM OXYBATE
     Dosage: 2.25 G, BID
     Route: 048
     Dates: start: 2014
  10. PROTONIX [Concomitant]
     Active Substance: PANTOPRAZOLE SODIUM
     Indication: GASTROOESOPHAGEAL REFLUX DISEASE
     Dosage: UNK
  11. ASPIRIN. [Concomitant]
     Active Substance: ASPIRIN
     Indication: CEREBROVASCULAR ACCIDENT
     Dosage: UNK

REACTIONS (2)
  - Therapeutic response unexpected [Not Recovered/Not Resolved]
  - Product use issue [Unknown]

NARRATIVE: CASE EVENT DATE: 20141025
